FAERS Safety Report 5152645-1 (Version None)
Quarter: 2006Q4

REPORT INFORMATION
  Report Type: 
  Country: None (occurrence: None)
  Receive Date: 20061109
  Receipt Date: 20061027
  Transmission Date: 20070319
  Serious: Yes (Other)
  Sender: FDA-Public Use
  Company Number: 2005113209

PATIENT
  Age: 22 Month
  Sex: Female
  Weight: 13.35 kg

DRUGS (1)
  1. BENADRYL ALLERGY (DIPHENHYDRAMINE) (DIPHENYDRAMINE) [Suspect]
     Indication: SEASONAL ALLERGY
     Dosage: 1/2 TEASPOON EVERY 6 HOURS, ORAL
     Route: 048
     Dates: start: 20050626, end: 20050708

REACTIONS (5)
  - BACTERAEMIA [None]
  - CULTURE WOUND POSITIVE [None]
  - EYE INFECTION [None]
  - FUNGAL INFECTION [None]
  - STAPHYLOCOCCAL INFECTION [None]
